FAERS Safety Report 14375902 (Version 1)
Quarter: 2018Q1

REPORT INFORMATION
  Report Type: Report from Study
  Country: US (occurrence: US)
  Receive Date: 20180111
  Receipt Date: 20180111
  Transmission Date: 20180509
  Serious: Yes (Hospitalization, Other)
  Sender: FDA-Public Use
  Company Number: US-OTSUKA-2018_000288

PATIENT
  Sex: Female

DRUGS (3)
  1. DEXTROMETHORPHAN/QUINIDINE [Suspect]
     Active Substance: DEXTROMETHORPHAN HYDROBROMIDE\QUINIDINE SULFATE
     Dosage: UNK, QD
     Route: 048
     Dates: start: 201704
  2. DEXTROMETHORPHAN/QUINIDINE [Suspect]
     Active Substance: DEXTROMETHORPHAN HYDROBROMIDE\QUINIDINE SULFATE
     Indication: AFFECT LABILITY
     Dosage: UNK, BID
     Route: 048
     Dates: start: 201703
  3. GABAPENTIN. [Concomitant]
     Active Substance: GABAPENTIN
     Indication: PAIN
     Dosage: UNK

REACTIONS (9)
  - Cerebrovascular accident [Unknown]
  - Dementia [Unknown]
  - Aphasia [Unknown]
  - Personality change [Unknown]
  - Disease recurrence [Unknown]
  - Insomnia [Unknown]
  - Off label use [Unknown]
  - Pain [Unknown]
  - Hospice care [Unknown]

NARRATIVE: CASE EVENT DATE: 2017
